FAERS Safety Report 7927254-9 (Version None)
Quarter: 2011Q4

REPORT INFORMATION
  Report Type: 
  Country: None (occurrence: None)
  Receive Date: 20111118
  Receipt Date: 20111110
  Transmission Date: 20120403
  Serious: Yes (Hospitalization)
  Sender: FDA-Public Use
  Company Number: IE-MEDIMMUNE-MEDI-0013317

PATIENT
  Sex: Female
  Weight: 5.1 kg

DRUGS (7)
  1. SYNAGIS [Suspect]
     Indication: ATRIOVENTRICULAR SEPTAL DEFECT
  2. SPIRONOLACTONE [Concomitant]
     Route: 048
     Dates: start: 20110101, end: 20110601
  3. IRON [Concomitant]
     Route: 048
     Dates: end: 20110601
  4. FUROSEMIDE [Concomitant]
     Route: 048
     Dates: start: 20110101, end: 20110601
  5. SYNAGIS [Suspect]
     Indication: TRISOMY 21
  6. SYNAGIS [Suspect]
     Indication: LOWER RESPIRATORY TRACT INFECTION
  7. KAPSOVIT [Concomitant]
     Indication: VITAMIN SUPPLEMENTATION
     Route: 048
     Dates: end: 20110727

REACTIONS (2)
  - BRONCHIOLITIS [None]
  - RESPIRATORY SYNCYTIAL VIRUS BRONCHIOLITIS [None]
